FAERS Safety Report 4801793-1 (Version None)
Quarter: 2005Q4

REPORT INFORMATION
  Report Type: 
  Country: None (occurrence: None)
  Receive Date: 20051018
  Receipt Date: 20051011
  Transmission Date: 20060501
  Serious: Yes (Other)
  Sender: FDA-Public Use
  Company Number: US-JNJFOC-20051003059

PATIENT
  Sex: Female
  Weight: 64.41 kg

DRUGS (6)
  1. DURAGESIC-100 [Suspect]
     Route: 062
     Dates: start: 20020201
  2. EFFEXOR [Concomitant]
     Indication: DEPRESSION
     Route: 048
     Dates: start: 20031101
  3. PERCOCET [Concomitant]
     Route: 048
     Dates: start: 20031101
  4. PERCOCET [Concomitant]
     Indication: PAIN
     Dosage: OXYCODONE  HCI 5 MG/ACETAMINOPHEN 325 MG, 4 IN 24 HOUR(S), AS NECESSARY, ORAL
     Route: 048
     Dates: start: 20031101
  5. ELAVIL [Concomitant]
     Indication: DEPRESSION
     Route: 048
     Dates: start: 19900101
  6. ATIVAN [Concomitant]
     Indication: ANXIETY
     Route: 048
     Dates: start: 19900101

REACTIONS (2)
  - FALL [None]
  - WRIST FRACTURE [None]
